FAERS Safety Report 16429766 (Version 3)
Quarter: 2019Q3

REPORT INFORMATION
  Report Type: Spontaneous
  Country: FR (occurrence: FR)
  Receive Date: 20190614
  Receipt Date: 20190711
  Transmission Date: 20191004
  Serious: Yes (Other)
  Sender: FDA-Public Use
  Company Number: FR-ACCORD-132824

PATIENT
  Age: 53 Year
  Sex: Female
  Weight: 70 kg

DRUGS (7)
  1. DEXERYL [Concomitant]
     Dosage: 250 UNK, UNK
     Dates: start: 20150605, end: 20171013
  2. DAIVOBET [Concomitant]
     Active Substance: BETAMETHASONE DIPROPIONATE\CALCIPOTRIENE
     Dates: start: 20161216
  3. METHOTREXATE. [Suspect]
     Active Substance: METHOTREXATE
     Indication: PSORIASIS
     Dosage: ALSO RECEIVED 10 MG WEEKLY FROM 13-NOV-2014 TO 18-DEC-2014,
     Route: 048
     Dates: start: 20141218, end: 20171013
  4. BETAMETHASONE. [Concomitant]
     Active Substance: BETAMETHASONE
     Dates: start: 20140623
  5. METHOTREXATE. [Concomitant]
     Active Substance: METHOTREXATE
     Dates: start: 20150917, end: 20161216
  6. FOLIC ACID. [Concomitant]
     Active Substance: FOLIC ACID
     Indication: PSORIASIS
     Dosage: 5 MG, WEEKLY
     Route: 048
     Dates: start: 20141113, end: 20171013
  7. CLOBETASOL [Concomitant]
     Active Substance: CLOBETASOL
     Dosage: 50 UNK, UNK
     Dates: start: 20141113

REACTIONS (3)
  - Tuberculosis [Not Recovered/Not Resolved]
  - Hepatitis cholestatic [Recovered/Resolved]
  - Gamma-glutamyltransferase increased [Not Recovered/Not Resolved]

NARRATIVE: CASE EVENT DATE: 20150911
